FAERS Safety Report 6767424-9 (Version None)
Quarter: 2010Q2

REPORT INFORMATION
  Report Type: 
  Country: None (occurrence: None)
  Receive Date: 20100611
  Receipt Date: 20100611
  Transmission Date: 20101027
  Serious: No
  Sender: FDA-Public Use
  Company Number: None

PATIENT
  Age: 69 Year
  Sex: Male
  Weight: 102.5129 kg

DRUGS (2)
  1. PROPOFOL [Suspect]
     Indication: OESOPHAGOGASTRODUODENOSCOPY
     Dosage: 130 MG X1 DOSE IV
     Route: 042
     Dates: start: 20100531
  2. PROPOFOL [Suspect]
     Indication: SEDATION
     Dosage: 130 MG X1 DOSE IV
     Route: 042
     Dates: start: 20100531

REACTIONS (3)
  - BRADYCARDIA [None]
  - HYPOTENSION [None]
  - HYPOXIA [None]
